FAERS Safety Report 22052770 (Version 3)
Quarter: 2023Q1

REPORT INFORMATION
  Report Type: Report from Study
  Country: US (occurrence: US)
  Receive Date: 20230302
  Receipt Date: 20230323
  Transmission Date: 20230418
  Serious: Yes (Hospitalization)
  Sender: FDA-Public Use
  Company Number: US-ASTELLAS-2023US003678

PATIENT
  Age: 70 Year
  Sex: Female

DRUGS (7)
  1. GILTERITINIB [Suspect]
     Active Substance: GILTERITINIB
     Indication: Acute myeloid leukaemia
     Dosage: 120 MG, ONCE DAILY (AT NIGHT)
     Route: 048
     Dates: start: 20230107, end: 202301
  2. GILTERITINIB [Suspect]
     Active Substance: GILTERITINIB
     Route: 048
     Dates: start: 202301, end: 202302
  3. ACYCLOVIR [Concomitant]
     Active Substance: ACYCLOVIR
     Indication: Product used for unknown indication
     Route: 048
  4. VITAMIN D3 [Concomitant]
     Active Substance: CHOLECALCIFEROL
     Indication: Supplementation therapy
     Dosage: UNK UNK, UNKNOWN FREQ.
     Route: 048
  5. MAGNESIUM OXIDE [Concomitant]
     Active Substance: MAGNESIUM OXIDE
     Indication: Supplementation therapy
     Dosage: UNK UNK, UNKNOWN FREQ.
     Route: 048
  6. POTASSIUM CHLORIDE [Concomitant]
     Active Substance: POTASSIUM CHLORIDE
     Indication: Muscle spasms
     Route: 048
  7. IRBESARTAN [Concomitant]
     Active Substance: IRBESARTAN
     Indication: Hypertension
     Route: 048

REACTIONS (6)
  - Swelling [Recovered/Resolved]
  - Groin infection [Recovered/Resolved]
  - Swelling [Recovered/Resolved]
  - Condition aggravated [Recovered/Resolved]
  - Peripheral swelling [Recovered/Resolved]
  - Fatigue [Recovered/Resolved]

NARRATIVE: CASE EVENT DATE: 20230101
